FAERS Safety Report 5019216-9 (Version None)
Quarter: 2006Q2

REPORT INFORMATION
  Report Type: 
  Country: None (occurrence: None)
  Receive Date: 20060531
  Receipt Date: 20060515
  Transmission Date: 20061013
  Serious: Yes (Hospitalization)
  Sender: FDA-Public Use
  Company Number: IMP_2289_2006

PATIENT
  Age: 13 Year
  Weight: 43 kg

DRUGS (8)
  1. OMEPRAZOLE [Suspect]
     Indication: GASTROOESOPHAGEAL REFLUX DISEASE
     Dosage: 20 MG QDAY
  2. TACROLIMUS [Concomitant]
  3. METHYLPREDNISONE [Concomitant]
  4. VALACICLOVIR /01269702/ [Concomitant]
  5. COTRIM [Concomitant]
  6. NIFEDIPINE [Concomitant]
  7. ACEBUTOLOL [Concomitant]
  8. ASPIRIN [Concomitant]

REACTIONS (3)
  - DRUG INTERACTION POTENTIATION [None]
  - DRUG TOXICITY [None]
  - RENAL FAILURE ACUTE [None]
